FAERS Safety Report 13073053 (Version 1)
Quarter: 2016Q4

REPORT INFORMATION
  Report Type: Other
  Country: TR (occurrence: TR)
  Receive Date: 20161229
  Receipt Date: 20161229
  Transmission Date: 20170207
  Serious: Yes (Other)
  Sender: FDA-Public Use
  Company Number: TR-GUERBET LLC-1061384

PATIENT
  Age: 49 Year
  Sex: Male

DRUGS (1)
  1. OPTIRAY [Suspect]
     Active Substance: IOVERSOL
     Indication: PERCUTANEOUS CORONARY INTERVENTION

REACTIONS (4)
  - Hypocalcaemia [Recovered/Resolved]
  - Nephropathy toxic [Recovered/Resolved]
  - Hypercalciuria [Recovered/Resolved]
  - Ventricular fibrillation [Recovered/Resolved]
